FAERS Safety Report 18122217 (Version 1)
Quarter: 2020Q3

REPORT INFORMATION
  Report Type: Spontaneous
  Country: US (occurrence: US)
  Receive Date: 20200807
  Receipt Date: 20200807
  Transmission Date: 20201103
  Serious: Yes (Death, Other)
  Sender: FDA-Public Use
  Company Number: US-GILEAD-2020-0487677

PATIENT

DRUGS (1)
  1. COMPLERA [Suspect]
     Active Substance: EMTRICITABINE\RILPIVIRINE HYDROCHLORIDE\TENOFOVIR DISOPROXIL FUMARATE
     Indication: HIV INFECTION
     Dosage: UNK
     Route: 048
     Dates: start: 201407, end: 201902

REACTIONS (7)
  - Renal failure [Fatal]
  - Chronic kidney disease [Unknown]
  - Diabetes mellitus [Unknown]
  - Osteoporosis [Unknown]
  - Bone density decreased [Unknown]
  - Osteonecrosis [Unknown]
  - Bone loss [Unknown]
